FAERS Safety Report 4424633-1 (Version None)
Quarter: 2004Q3

REPORT INFORMATION
  Report Type: 
  Country: None (occurrence: None)
  Receive Date: 20040812
  Receipt Date: 20040719
  Transmission Date: 20050211
  Serious: Yes (Hospitalization, Other)
  Sender: FDA-Public Use
  Company Number: PHEH2004US07789

PATIENT
  Age: 89 Year
  Sex: Female
  Weight: 50 kg

DRUGS (12)
  1. ZELNORM [Suspect]
     Indication: IRRITABLE BOWEL SYNDROME
     Dosage: 6 MG, ONCE/SINGLE
     Route: 048
     Dates: start: 20030825
  2. PEPTO-BISMOL [Concomitant]
  3. LEVOXYL [Concomitant]
     Dosage: .075 MG, QD
     Route: 048
  4. PAXIL [Concomitant]
     Dosage: 25 MG, QD
     Route: 048
  5. DURAGESIC [Concomitant]
     Route: 062
  6. DIAZEPAM [Concomitant]
     Dosage: UNK, PRN
  7. ZESTRIL [Concomitant]
     Dosage: 5 MG, QD
     Route: 048
  8. HYDROCODONE [Concomitant]
  9. PREMARIN [Concomitant]
     Dosage: .625 MG, QD
     Route: 048
  10. LAXATIVES [Suspect]
     Dosage: 3 TABLETS
  11. PEPCID [Concomitant]
     Dosage: UNK, QD
     Route: 048
  12. OXYGEN THERAPY [Concomitant]
     Indication: HYPOXIA
     Dosage: UNK, QHS

REACTIONS (20)
  - ABDOMINAL PAIN [None]
  - ASPARTATE AMINOTRANSFERASE INCREASED [None]
  - ASTHENIA [None]
  - BLOOD PRESSURE INCREASED [None]
  - DIARRHOEA [None]
  - DIFFERENTIAL WHITE BLOOD CELL COUNT ABNORMAL [None]
  - EPIGASTRIC DISCOMFORT [None]
  - FAECES DISCOLOURED [None]
  - HAEMATOCRIT DECREASED [None]
  - HAEMOGLOBIN DECREASED [None]
  - HEART RATE INCREASED [None]
  - HYPOKALAEMIA [None]
  - HYPOTENSION [None]
  - PROSTRATION [None]
  - RETCHING [None]
  - SINUS TACHYCARDIA [None]
  - SUPRAVENTRICULAR EXTRASYSTOLES [None]
  - URINE ANALYSIS ABNORMAL [None]
  - VENTRICULAR EXTRASYSTOLES [None]
  - VOMITING [None]
